FAERS Safety Report 5485227-2 (Version None)
Quarter: 2007Q4

REPORT INFORMATION
  Report Type: 
  Country: None (occurrence: None)
  Receive Date: 20071015
  Receipt Date: 20070928
  Transmission Date: 20080405
  Serious: Yes (Other)
  Sender: FDA-Public Use
  Company Number: US-ELI_LILLY_AND_COMPANY-US200710000073

PATIENT
  Sex: Male

DRUGS (7)
  1. CYMBALTA [Suspect]
     Indication: DEPRESSION
     Dosage: 60 MG, DAILY (1/D)
     Dates: start: 20030101
  2. NEURONTIN [Concomitant]
  3. LYRICA [Concomitant]
  4. TOPAMAX [Concomitant]
  5. REYATAZ [Concomitant]
  6. NORVIR [Concomitant]
  7. TRUVADA [Concomitant]

REACTIONS (1)
  - HIV INFECTION [None]
